FAERS Safety Report 5152816-4 (Version None)
Quarter: 2006Q4

REPORT INFORMATION
  Report Type: 
  Country: None (occurrence: None)
  Receive Date: 20061109
  Receipt Date: 20061027
  Transmission Date: 20070319
  Serious: Yes (Hospitalization)
  Sender: FDA-Public Use
  Company Number: 228369

PATIENT
  Age: 48 Year
  Sex: Female
  Weight: 77.1 kg

DRUGS (9)
  1. RAPTIVA [Suspect]
     Indication: PSORIASIS
     Dosage: 1.25 MG, 1/WEEK, SUBCUTANEOUS
     Route: 058
     Dates: start: 20060501, end: 20060717
  2. BENICAR HCT (HYDROCHLOROTHIAZIDE, OLMESARTAN MEDOXOMIL) [Concomitant]
  3. TYLENOL (CAPLET) [Concomitant]
  4. HYDROXYZINE [Concomitant]
  5. PREDNISONE TAB [Concomitant]
  6. VICODIN [Concomitant]
  7. BENICAR [Concomitant]
  8. COLACE (DOCUSATE SODIUM) [Concomitant]
  9. ANALGESICS (ANALGESICS NOS) [Concomitant]

REACTIONS (22)
  - BLOOD GLUCOSE INCREASED [None]
  - COAGULOPATHY [None]
  - GAIT DISTURBANCE [None]
  - HYPOREFLEXIA [None]
  - INTERNATIONAL NORMALISED RATIO INCREASED [None]
  - JOINT EFFUSION [None]
  - JOINT SWELLING [None]
  - MUSCLE ATROPHY [None]
  - MUSCULAR WEAKNESS [None]
  - MUSCULOSKELETAL STIFFNESS [None]
  - MYOSITIS [None]
  - NEUTROPHIL COUNT INCREASED [None]
  - OEDEMA PERIPHERAL [None]
  - OSTEOARTHRITIS [None]
  - PAIN IN EXTREMITY [None]
  - PATELLOFEMORAL PAIN SYNDROME [None]
  - PLATELET COUNT INCREASED [None]
  - PROTHROMBIN TIME PROLONGED [None]
  - SERUM SICKNESS [None]
  - SOFT TISSUE DISORDER [None]
  - TENDONITIS [None]
  - URINARY INCONTINENCE [None]
